FAERS Safety Report 9715275 (Version 3)
Quarter: 2014Q1

REPORT INFORMATION
  Report Type: Spontaneous
  Country: JP (occurrence: JP)
  Receive Date: 20131127
  Receipt Date: 20140321
  Transmission Date: 20141002
  Serious: Yes (Hospitalization)
  Sender: FDA-Public Use
  Company Number: JP-AMGEN-JPNSP2013082854

PATIENT
  Age: 72 Year
  Sex: Female

DRUGS (7)
  1. ENBREL [Suspect]
     Indication: RHEUMATOID ARTHRITIS
     Dosage: 25 MG, WEEKLY
     Route: 058
     Dates: start: 20111117, end: 201311
  2. ADALAT CRONO [Concomitant]
     Dosage: UNK
  3. SELOKEN                            /00376902/ [Concomitant]
     Dosage: UNK
  4. RIZE                               /00624801/ [Concomitant]
     Dosage: UNK
  5. RAMIAN [Concomitant]
     Dosage: UNK
  6. JUVELA                             /00110502/ [Concomitant]
     Dosage: UNK
  7. RHEUMATREX                         /00113802/ [Concomitant]
     Dosage: UNK
     Dates: start: 20110222

REACTIONS (1)
  - Mesenteric neoplasm [Unknown]
